FAERS Safety Report 22371874 (Version 5)
Quarter: 2024Q1

REPORT INFORMATION
  Report Type: Spontaneous
  Country: US (occurrence: US)
  Receive Date: 20230526
  Receipt Date: 20240311
  Transmission Date: 20240409
  Serious: No
  Sender: FDA-Public Use
  Company Number: US-PFIZER INC-202300200467

PATIENT
  Age: 33 Year
  Sex: Male
  Weight: 52.62 kg

DRUGS (10)
  1. OXBRYTA [Suspect]
     Active Substance: VOXELOTOR
     Indication: Sickle cell anaemia
     Dosage: 1.5 G, DAILY
  2. OXBRYTA [Suspect]
     Active Substance: VOXELOTOR
     Indication: Sickle cell disease
     Dosage: 1500 MG (3 TABLETS OF 500 MG), ONCE DAILY
     Route: 048
     Dates: start: 20230203, end: 2023
  3. OXBRYTA [Suspect]
     Active Substance: VOXELOTOR
     Dosage: 1500 MG (3 TABLETS OF 500 MG), AS NEEDED (SWALLOW WHOLE)
     Route: 048
     Dates: start: 20230323, end: 202303
  4. OXBRYTA [Suspect]
     Active Substance: VOXELOTOR
     Dosage: 1500 MG (3 TABLETS OF 500 MG), ONCE DAILY
     Route: 048
     Dates: start: 202303
  5. HYDROXYUREA [Suspect]
     Active Substance: HYDROXYUREA
     Indication: Pain
     Dosage: 1.5 G, 6 DAYS A WEEK
  6. HYDROXYUREA [Suspect]
     Active Substance: HYDROXYUREA
     Dosage: 1 G, 1 DAY A WEEK
  7. HYDROXYUREA [Suspect]
     Active Substance: HYDROXYUREA
     Dosage: UNK, AS NEEDED
  8. FOLIC ACID [Concomitant]
     Active Substance: FOLIC ACID
     Indication: Pain
     Dosage: 1 G, 1X/DAY
  9. FOLIC ACID [Concomitant]
     Active Substance: FOLIC ACID
     Dosage: UNK, AS NEEDED
  10. HYDROMORPHONE [Concomitant]
     Active Substance: HYDROMORPHONE
     Indication: Pain
     Dosage: UNK, AS NEEDED

REACTIONS (4)
  - Diarrhoea [Not Recovered/Not Resolved]
  - Vertigo [Recovering/Resolving]
  - Intentional dose omission [Unknown]
  - Product dose omission issue [Unknown]

NARRATIVE: CASE EVENT DATE: 20230101
